FAERS Safety Report 9773574 (Version 1)
Quarter: 2013Q4

REPORT INFORMATION
  Report Type: Spontaneous
  Country: IN (occurrence: None)
  Receive Date: 20131217
  Receipt Date: 20131217
  Transmission Date: 20140711
  Serious: Yes (Hospitalization)
  Sender: FDA-Public Use
  Company Number: B0952540A

PATIENT
  Age: 8 Month
  Sex: Male

DRUGS (3)
  1. LAMIVUDINE [Suspect]
     Indication: HIV INFECTION
     Route: 064
  2. STAVUDINE [Suspect]
     Indication: HIV INFECTION
     Route: 064
  3. NEVIRAPINE [Suspect]
     Indication: HIV INFECTION
     Route: 064

REACTIONS (8)
  - Hyperlactacidaemia [None]
  - Small for dates baby [None]
  - Maternal drugs affecting foetus [None]
  - Caesarean section [None]
  - Blood pressure decreased [None]
  - Oxygen saturation decreased [None]
  - White blood cell count increased [None]
  - Developmental delay [None]
